FAERS Safety Report 21296583 (Version 1)
Quarter: 2022Q3

REPORT INFORMATION
  Report Type: Spontaneous
  Country: US (occurrence: US)
  Receive Date: 20220906
  Receipt Date: 20220906
  Transmission Date: 20221026
  Serious: No
  Sender: FDA-Public Use
  Company Number: US-AMGEN-USASP2022142167

PATIENT
  Age: 27 Year
  Sex: Female

DRUGS (2)
  1. XGEVA [Suspect]
     Active Substance: DENOSUMAB
     Indication: Bone giant cell tumour benign
     Dosage: 120 MILLIGRAM, QMO
     Route: 065
     Dates: start: 201301
  2. INTERFERON [Concomitant]
     Active Substance: INTERFERON
     Indication: Bone giant cell tumour benign
     Dosage: 1.1 ~TG/KG WEEKLY
     Route: 065
     Dates: start: 201301

REACTIONS (4)
  - Drug effective for unapproved indication [Unknown]
  - Head deformity [Unknown]
  - Pain [Unknown]
  - Off label use [Unknown]

NARRATIVE: CASE EVENT DATE: 20130101
